FAERS Safety Report 6844824-X (Version None)
Quarter: 2010Q3

REPORT INFORMATION
  Report Type: 
  Country: None (occurrence: None)
  Receive Date: 20100715
  Receipt Date: 20100713
  Transmission Date: 20110219
  Serious: Yes (Other)
  Sender: FDA-Public Use
  Company Number: MX-PFIZER INC-2010059965

PATIENT
  Age: 48 Year
  Sex: Female
  Weight: 62 kg

DRUGS (11)
  1. BLINDED *IBUPROFEN [Suspect]
     Indication: OSTEOARTHRITIS
     Dosage: UNK
     Route: 048
     Dates: start: 20080417, end: 20080625
  2. NAPROXEN [Suspect]
     Indication: OSTEOARTHRITIS
     Dosage: UNK
     Route: 048
     Dates: start: 20080417, end: 20080625
  3. BLINDED *NO SUBJECT DRUG [Suspect]
     Indication: OSTEOARTHRITIS
     Dosage: UNK
     Route: 048
     Dates: start: 20080417, end: 20080625
  4. BLINDED *PLACEBO [Suspect]
     Indication: OSTEOARTHRITIS
     Dosage: UNK
     Route: 048
     Dates: start: 20080417, end: 20080625
  5. BLINDED CELECOXIB [Suspect]
     Indication: OSTEOARTHRITIS
     Dosage: UNK
     Route: 048
     Dates: start: 20080417, end: 20080625
  6. BLINDED IBUPROFEN [Suspect]
     Dosage: UNK
     Route: 048
     Dates: start: 20080417, end: 20080625
  7. NAPROXEN [Suspect]
     Dosage: UNK
     Route: 048
     Dates: start: 20080417, end: 20080625
  8. METFORMIN [Concomitant]
     Dosage: UNK
     Route: 048
     Dates: start: 20070101
  9. METOPROLOL [Concomitant]
     Dosage: UNK
     Route: 048
     Dates: start: 20000101
  10. AZATHIOPRINE [Concomitant]
     Dosage: UNK
     Route: 048
     Dates: start: 19980101
  11. PRAZOSIN HYDROCHLORIDE [Concomitant]
     Dosage: UNK
     Route: 048
     Dates: start: 20080514

REACTIONS (1)
  - NEPHROTIC SYNDROME [None]
